FAERS Safety Report 7269787-7 (Version None)
Quarter: 2011Q1

REPORT INFORMATION
  Report Type: 
  Country: None (occurrence: None)
  Receive Date: 20110202
  Receipt Date: 20110118
  Transmission Date: 20110831
  Serious: Yes (Death, Hospitalization)
  Sender: FDA-Public Use
  Company Number: CA-CELGENEUS-028-C5013-10123102

PATIENT
  Sex: Male
  Weight: 62 kg

DRUGS (37)
  1. NITRO-DUR [Concomitant]
     Indication: HYPERTENSION
     Route: 048
     Dates: start: 20060101
  2. CHLORPROMAZINE [Concomitant]
     Indication: HICCUPS
     Route: 048
     Dates: start: 20100129, end: 20100201
  3. DEXAMETHASONE [Suspect]
     Indication: MULTIPLE MYELOMA
     Route: 065
     Dates: start: 20091215, end: 20100511
  4. GLYBURIDE [Concomitant]
     Route: 048
     Dates: start: 20100316
  5. FOLIC ACID [Concomitant]
     Indication: VITAMIN SUPPLEMENTATION
     Route: 048
     Dates: start: 20101105
  6. VITAMIN B-12 [Concomitant]
     Indication: VITAMIN SUPPLEMENTATION
     Route: 048
     Dates: start: 20101105
  7. PANTOLOC [Concomitant]
     Route: 048
     Dates: start: 20100713
  8. NORMAL SALINE [Concomitant]
     Indication: DEHYDRATION
     Route: 051
     Dates: start: 20100202, end: 20100202
  9. FERROUS GLUCONATE [Concomitant]
     Route: 048
     Dates: start: 20070101
  10. RAMIPRIL [Concomitant]
     Indication: HYPERTENSION
     Route: 048
     Dates: start: 19990101
  11. METFORMIN [Concomitant]
     Route: 048
     Dates: start: 20060101
  12. NEUPOGEN [Concomitant]
     Route: 058
     Dates: start: 20101216, end: 20101220
  13. EPEX [Concomitant]
     Indication: NEUTROPENIA
     Route: 058
     Dates: start: 20100211, end: 20101123
  14. SLOW-K [Concomitant]
     Route: 048
     Dates: start: 20101022, end: 20101102
  15. CC-5013 [Suspect]
     Route: 048
     Dates: start: 20101123, end: 20101221
  16. ATACAND [Concomitant]
     Indication: HYPERTENSION
     Route: 048
     Dates: start: 20070101
  17. IMODIUM [Concomitant]
     Route: 048
     Dates: start: 20100405
  18. NEUPOGEN [Concomitant]
     Route: 058
     Dates: start: 20100921, end: 20100927
  19. NEUPOGEN [Concomitant]
     Route: 058
     Dates: start: 20110113, end: 20110117
  20. LEVOFLOXACIN [Concomitant]
     Indication: INFECTION PROPHYLAXIS
     Route: 048
     Dates: start: 20100202, end: 20100216
  21. AMOXICILLIN AND CLAVULANATE POTASSIUM [Concomitant]
     Route: 048
     Dates: start: 20101019
  22. CALCIUM [Concomitant]
     Route: 048
     Dates: start: 20101123
  23. MOXIFLOXACIN [Concomitant]
     Route: 048
     Dates: start: 20101013, end: 20101018
  24. CC-5013 [Suspect]
     Indication: MULTIPLE MYELOMA
     Route: 048
     Dates: start: 20091215
  25. LIPITOR [Concomitant]
     Route: 048
     Dates: start: 20040101
  26. NORVASC [Concomitant]
     Indication: HYPERTENSION
     Route: 048
     Dates: start: 20070101
  27. BISOPROLOL [Concomitant]
     Indication: HYPERTENSION
     Route: 048
     Dates: start: 20050101
  28. ELTROXIN [Concomitant]
     Indication: HYPOTHYROIDISM
     Route: 048
     Dates: start: 19890101
  29. ASPIRIN [Concomitant]
     Indication: THROMBOSIS PROPHYLAXIS
     Route: 048
     Dates: start: 19990101
  30. NEUPOGEN [Concomitant]
     Indication: PROPHYLAXIS
     Route: 058
     Dates: start: 20101116, end: 20101122
  31. NEUPOGEN [Concomitant]
     Route: 058
     Dates: start: 20100210, end: 20100315
  32. METFORMIN [Concomitant]
     Route: 048
     Dates: start: 20100112
  33. PAMIDRONATE DISODIUM [Concomitant]
     Indication: PROPHYLAXIS
     Route: 051
     Dates: start: 20100423
  34. MAGNESIUM [Concomitant]
     Route: 048
     Dates: start: 20101123
  35. NEUPOGEN [Concomitant]
     Route: 058
     Dates: start: 20101019, end: 20101021
  36. KEFLEX [Concomitant]
     Route: 048
     Dates: start: 20100819, end: 20100827
  37. TYLENOL-500 [Concomitant]
     Route: 048
     Dates: start: 20101012, end: 20101014

REACTIONS (2)
  - CARDIO-RESPIRATORY ARREST [None]
  - DEATH [None]
